FAERS Safety Report 25283926 (Version 2)
Quarter: 2025Q3

REPORT INFORMATION
  Report Type: Spontaneous
  Country: US (occurrence: US)
  Receive Date: 20250508
  Receipt Date: 20250701
  Transmission Date: 20251021
  Serious: No
  Sender: DR REDDYS
  Company Number: US-DRL-USA-USA/2025/04/006127

PATIENT
  Age: 80 Year
  Sex: Female
  Weight: 68.04 kg

DRUGS (2)
  1. CIPROFLOXACIN AND DEXAMETHASONE [Suspect]
     Active Substance: CIPROFLOXACIN HYDROCHLORIDE\DEXAMETHASONE
     Indication: Tracheostomy
     Dosage: SERIAL NUMBER: WH7YKHOHTQQ7.?7.5 ML FILL IN 10 ML BOTTLE?COUPLE OF DROPS PER DAY FOR ONE WEEK
     Route: 001
     Dates: end: 20250425
  2. CIPROFLOXACIN AND DEXAMETHASONE [Suspect]
     Active Substance: CIPROFLOXACIN HYDROCHLORIDE\DEXAMETHASONE
     Indication: Pharyngeal swelling

REACTIONS (2)
  - Product prescribing error [Unknown]
  - Product prescribing issue [Unknown]
